FAERS Safety Report 9631507 (Version 4)
Quarter: 2014Q3

REPORT INFORMATION
  Report Type: Spontaneous
  Country: FR (occurrence: None)
  Receive Date: 20131015
  Receipt Date: 20140730
  Transmission Date: 20150326
  Serious: Yes (Other)
  Sender: FDA-Public Use
  Company Number: 2012FR000877

PATIENT
  Age: 87 Year
  Sex: Female
  Weight: 59 kg

DRUGS (7)
  1. PONATINIB [Suspect]
     Active Substance: PONATINIB
     Indication: CHRONIC MYELOID LEUKAEMIA
     Route: 048
     Dates: start: 20110531, end: 20130625
  2. SPIRONOLACTONE. [Concomitant]
     Active Substance: SPIRONOLACTONE
  3. KARDEGIC [Concomitant]
     Active Substance: ASPIRIN LYSINE
  4. INEXIUM [Concomitant]
     Active Substance: ESOMEPRAZOLE
  5. CRESTOR [Concomitant]
     Active Substance: ROSUVASTATIN CALCIUM
  6. GLYCEROL\PARAFFIN [Concomitant]
     Active Substance: GLYCERIN\PARAFFIN
  7. ATACAND [Concomitant]
     Active Substance: CANDESARTAN CILEXETIL

REACTIONS (10)
  - Ichthyosis [None]
  - Aspartate aminotransferase increased [None]
  - Peripheral arterial occlusive disease [None]
  - Peripheral artery thrombosis [None]
  - Drug ineffective [None]
  - Aortic disorder [None]
  - Peripheral artery stenosis [None]
  - Alanine aminotransferase increased [None]
  - Intermittent claudication [None]
  - Depression [None]

NARRATIVE: CASE EVENT DATE: 20120917
